FAERS Safety Report 17561487 (Version 1)
Quarter: 2020Q1

REPORT INFORMATION
  Report Type: Spontaneous
  Country: FR (occurrence: FR)
  Receive Date: 20200319
  Receipt Date: 20200319
  Transmission Date: 20200409
  Serious: Yes (Life-Threatening)
  Sender: FDA-Public Use
  Company Number: FR-MYLANLABS-2020M1028874

PATIENT
  Age: 41 Year
  Sex: Female
  Weight: 148 kg

DRUGS (5)
  1. MIDAZOLAM HYDROCHLORIDE. [Suspect]
     Active Substance: MIDAZOLAM HYDROCHLORIDE
     Indication: GENERAL ANAESTHESIA
     Dosage: 1 MILLIGRAM, TOTAL
     Route: 042
     Dates: start: 20200213, end: 20200213
  2. DIPRIVAN [Concomitant]
     Active Substance: PROPOFOL
     Indication: GENERAL ANAESTHESIA
     Dosage: 800 MILLIGRAM, TOTAL
     Route: 042
     Dates: start: 20200213, end: 20200213
  3. SUXAMETHONIUM                      /00057702/ [Suspect]
     Active Substance: SUCCINYLCHOLINE
     Indication: GENERAL ANAESTHESIA
     Dosage: 150 MILLIGRAM, TOTAL
     Route: 042
     Dates: start: 20200213, end: 20200213
  4. SUFENTA [Suspect]
     Active Substance: SUFENTANIL CITRATE
     Indication: GENERAL ANAESTHESIA
     Dosage: 15 MICROGRAM, QD
     Route: 042
     Dates: start: 20200213, end: 20200213
  5. KETAMINE [Suspect]
     Active Substance: KETAMINE
     Indication: GENERAL ANAESTHESIA
     Dosage: 10 MILLIGRAM, TOTAL
     Route: 042
     Dates: start: 20200213, end: 20200213

REACTIONS (1)
  - Anaphylactic shock [Recovered/Resolved]

NARRATIVE: CASE EVENT DATE: 20200213
